FAERS Safety Report 4590076-3 (Version None)
Quarter: 2005Q1

REPORT INFORMATION
  Report Type: 
  Country: None (occurrence: None)
  Receive Date: 20050217
  Receipt Date: 20050217
  Transmission Date: 20050727
  Serious: Yes (Hospitalization)
  Sender: FDA-Public Use
  Company Number: None

PATIENT
  Age: 83 Year
  Sex: Male
  Weight: 60.6 kg

DRUGS (9)
  1. NAPROXEN [Suspect]
  2. FOLIC ACID [Concomitant]
  3. CITALOPRAM HYDROBROMIDE [Concomitant]
  4. CLONAZEPAM [Concomitant]
  5. ISOSORBIDE DINITRATE [Concomitant]
  6. LOVASTATIN [Concomitant]
  7. DILTIAZEM (INWOOD) [Concomitant]
  8. RANITIDINE HCL [Concomitant]
  9. FUROSEMIDE [Concomitant]

REACTIONS (1)
  - GASTROINTESTINAL HAEMORRHAGE [None]
